FAERS Safety Report 9580716 (Version 1)
Quarter: 2013Q4

REPORT INFORMATION
  Report Type: Spontaneous
  Country: IE (occurrence: IE)
  Receive Date: 20131002
  Receipt Date: 20131002
  Transmission Date: 20140711
  Serious: Yes (Other)
  Sender: FDA-Public Use
  Company Number: IE-ASTRAZENECA-2013SE71377

PATIENT
  Sex: Male

DRUGS (2)
  1. XYLOCAINE SPRAY [Suspect]
     Route: 065
  2. XYLOCAINE (UNSPECIFIED) [Suspect]
     Route: 065

REACTIONS (1)
  - Anaphylactic reaction [Unknown]
